FAERS Safety Report 7655258-2 (Version None)
Quarter: 2011Q3

REPORT INFORMATION
  Report Type: 
  Country: None (occurrence: None)
  Receive Date: 20110804
  Receipt Date: 20110726
  Transmission Date: 20111222
  Serious: Yes (Hospitalization)
  Sender: FDA-Public Use
  Company Number: FR-JNJFOC-20110712309

PATIENT
  Age: 78 Year
  Sex: Male

DRUGS (13)
  1. PREVISCAN (FLUINDIONE) [Concomitant]
     Route: 065
     Dates: end: 20100312
  2. LASIX [Concomitant]
     Route: 065
  3. CORDARONE [Concomitant]
     Route: 065
  4. LEVOFLOXACIN [Suspect]
     Indication: BRONCHITIS
     Route: 048
     Dates: start: 20100309, end: 20100312
  5. LEXOMIL [Concomitant]
     Route: 065
  6. ZOLPIDEM [Concomitant]
     Route: 065
  7. VITAMIN K TAB [Interacting]
     Indication: PRODUCT USED FOR UNKNOWN INDICATION
     Route: 065
     Dates: end: 20100312
  8. LANSOPRAZOLE [Concomitant]
     Route: 065
  9. ACETAMINOPHEN [Concomitant]
     Route: 065
  10. SERETIDE [Concomitant]
     Route: 065
  11. RHINOCORT [Concomitant]
     Route: 065
  12. SPIRIVA [Concomitant]
     Route: 065
  13. DEDROGYL [Concomitant]
     Route: 065

REACTIONS (4)
  - DRUG INTERACTION [None]
  - SPONTANEOUS HAEMATOMA [None]
  - FALL [None]
  - TENDONITIS [None]
